FAERS Safety Report 7915587-1 (Version None)
Quarter: 2011Q4

REPORT INFORMATION
  Report Type: 
  Country: None (occurrence: None)
  Receive Date: 20111115
  Receipt Date: 20110802
  Transmission Date: 20120403
  Serious: Yes (Other)
  Sender: FDA-Public Use
  Company Number: US-BRISTOL-MYERS SQUIBB COMPANY-15922339

PATIENT
  Age: 70 Year
  Sex: Male
  Weight: 73 kg

DRUGS (1)
  1. YERVOY [Suspect]
     Indication: MALIGNANT MELANOMA
     Dosage: 200 MG/40 ML (200 MG BOTTLE) NDC#:0003-2328-22 LOT#:917039 EXP:AUG2013
     Dates: start: 20110501

REACTIONS (1)
  - NEUROPATHY PERIPHERAL [None]
